FAERS Safety Report 23742112 (Version 1)
Quarter: 2024Q2

REPORT INFORMATION
  Report Type: Spontaneous
  Country: US (occurrence: US)
  Receive Date: 20240415
  Receipt Date: 20240415
  Transmission Date: 20240715
  Serious: No
  Sender: FDA-Public Use
  Company Number: US-TAKEDA-2024TUS034028

PATIENT
  Sex: Female
  Weight: 100 kg

DRUGS (4)
  1. ENTYVIO [Suspect]
     Active Substance: VEDOLIZUMAB
     Indication: Crohn^s disease
     Dosage: 300 MILLIGRAM
     Route: 042
  2. ENTYVIO [Suspect]
     Active Substance: VEDOLIZUMAB
     Dosage: 300 MILLIGRAM, Q4WEEKS
     Route: 042
     Dates: start: 2022, end: 202306
  3. LIALDA [Suspect]
     Active Substance: MESALAMINE
     Indication: Crohn^s disease
     Dosage: 1.2 GRAM, QID
     Route: 065
     Dates: start: 2021, end: 2022
  4. LIALDA [Suspect]
     Active Substance: MESALAMINE
     Dosage: 1.2 GRAM, TID
     Route: 065
     Dates: start: 20240409

REACTIONS (2)
  - Drug level decreased [Unknown]
  - Off label use [Unknown]
